FAERS Safety Report 18933603 (Version 1)
Quarter: 2021Q1

REPORT INFORMATION
  Report Type: Spontaneous
  Country: AU (occurrence: AU)
  Receive Date: 20210224
  Receipt Date: 20210224
  Transmission Date: 20210420
  Serious: Yes (Hospitalization)
  Sender: FDA-Public Use
  Company Number: AU-MYLANLABS-2021M1011379

PATIENT
  Age: 17 Year
  Sex: Male
  Weight: 94 kg

DRUGS (4)
  1. LAMOTRIGINE. [Concomitant]
     Active Substance: LAMOTRIGINE
     Indication: FOCAL DYSCOGNITIVE SEIZURES
     Dosage: 100 MILLIGRAM, BID, SCHEDULED....
     Route: 065
  2. CLOZAPINE. [Suspect]
     Active Substance: CLOZAPINE
     Indication: INTELLECTUAL DISABILITY
     Dosage: 200 MILLIGRAM, QD
     Route: 065
  3. MIRTAZAPINE. [Concomitant]
     Active Substance: MIRTAZAPINE
     Indication: SEDATIVE THERAPY
     Dosage: 60 MILLIGRAM, QD, AT NIGHT
     Route: 065
  4. CLOZAPINE. [Suspect]
     Active Substance: CLOZAPINE
     Indication: AUTISM SPECTRUM DISORDER
     Dosage: 300 MILLIGRAM, QD
     Route: 065

REACTIONS (3)
  - Constipation [Recovering/Resolving]
  - Off label use [Unknown]
  - Sedation [Recovering/Resolving]
